FAERS Safety Report 8608689-8 (Version None)
Quarter: 2012Q3

REPORT INFORMATION
  Report Type: 
  Country: None (occurrence: None)
  Receive Date: 20120809
  Receipt Date: 20120809
  Transmission Date: 20120928
  Serious: No
  Sender: FDA-Public Use
  Company Number: None

PATIENT
  Sex: Female

DRUGS (3)
  1. LOTEMAX [Suspect]
     Indication: IRITIS
     Dosage: ONCE ADD QD SQ
     Route: 058
     Dates: start: 20070801
  2. LOTEMAX [Suspect]
     Indication: IRITIS
     Dosage: ONCE ADD QD SQ
     Route: 058
     Dates: start: 20020101
  3. LOTEMAX [Suspect]
     Indication: IRITIS
     Dosage: ONCE ADD QD SQ
     Route: 058
     Dates: start: 20070701

REACTIONS (2)
  - PRODUCT SUBSTITUTION ISSUE [None]
  - CONDITION AGGRAVATED [None]
